FAERS Safety Report 6010427-2 (Version None)
Quarter: 2008Q4

REPORT INFORMATION
  Report Type: 
  Country: None (occurrence: None)
  Receive Date: 20081218
  Receipt Date: 20081204
  Transmission Date: 20090506
  Serious: Yes (Other)
  Sender: FDA-Public Use
  Company Number: PHHY2008BR30808

PATIENT
  Age: 19 Year
  Sex: Female

DRUGS (1)
  1. METHERGINE [Suspect]
     Dosage: 0.125 MG, EVERY SIX HOURS

REACTIONS (4)
  - ABORTION INDUCED [None]
  - BLOOD URINE PRESENT [None]
  - DRUG EXPOSURE DURING PREGNANCY [None]
  - PAIN [None]
